FAERS Safety Report 9712604 (Version 2)
Quarter: 2013Q4

REPORT INFORMATION
  Report Type: Spontaneous
  Country: US (occurrence: US)
  Receive Date: 20131126
  Receipt Date: 20131126
  Transmission Date: 20140711
  Serious: No
  Sender: FDA-Public Use
  Company Number: US-BRISTOL-MYERS SQUIBB COMPANY-19202571

PATIENT
  Age: 71 Year
  Sex: Female
  Weight: 104.31 kg

DRUGS (7)
  1. BYDUREON [Suspect]
     Indication: DIABETES MELLITUS
     Route: 058
     Dates: start: 201304
  2. XANAX [Concomitant]
     Dosage: 0.5 MG, TWICE DAILY
  3. LOSARTAN [Concomitant]
  4. METFORMIN [Concomitant]
  5. METOPROLOL SUCCINATE [Concomitant]
  6. NEXIUM [Concomitant]
  7. PRAVASTATIN SODIUM [Concomitant]

REACTIONS (1)
  - Weight decreased [Unknown]
